FAERS Safety Report 9485649 (Version 1)
Quarter: 2013Q3

REPORT INFORMATION
  Report Type: Spontaneous
  Country: CN (occurrence: CN)
  Receive Date: 20130829
  Receipt Date: 20130829
  Transmission Date: 20140515
  Serious: Yes (Other)
  Sender: FDA-Public Use
  Company Number: CN-BRISTOL-MYERS SQUIBB COMPANY-19209139

PATIENT
  Age: 56 Year
  Sex: Male

DRUGS (5)
  1. BARACLUDE TABS [Suspect]
     Indication: CHRONIC HEPATITIS B
     Dosage: LAST DOSE: 18MAY2012
     Route: 048
     Dates: start: 20120516
  2. THYMOPENTIN [Concomitant]
     Dosage: DROPS, INJECTION
     Route: 042
     Dates: start: 20120515, end: 20120611
  3. ALPROSTADIL [Concomitant]
     Indication: HEPATIC FUNCTION ABNORMAL
     Dosage: INJECTION
     Route: 042
     Dates: start: 20120515, end: 20120530
  4. GLUTATHIONE [Concomitant]
     Indication: HEPATIC FUNCTION ABNORMAL
     Dosage: INJECTION
     Route: 042
     Dates: start: 20120515, end: 20120611
  5. GLYCYRRHIZINIC ACID [Concomitant]
     Indication: HEPATIC FUNCTION ABNORMAL
     Route: 042
     Dates: start: 20120515, end: 20120611

REACTIONS (2)
  - Neutrophil count decreased [Recovered/Resolved]
  - Thrombocytopenia [Recovered/Resolved]
